FAERS Safety Report 11239635 (Version 1)
Quarter: 2015Q3

REPORT INFORMATION
  Report Type: Spontaneous
  Country: US (occurrence: None)
  Receive Date: 20150701
  Receipt Date: 20150701
  Transmission Date: 20151125
  Serious: Yes (Disabling, Other)
  Sender: FDA-Public Use
  Company Number: None

PATIENT
  Age: 40 Year
  Sex: Male
  Weight: 74.84 kg

DRUGS (2)
  1. ZITHROMAX [Suspect]
     Active Substance: AZITHROMYCIN DIHYDRATE
     Indication: REITER^S SYNDROME
     Route: 048
  2. BLENDED FROZEN CRANBERRIES [Concomitant]

REACTIONS (2)
  - Drug abuse [None]
  - Erythema multiforme [None]

NARRATIVE: CASE EVENT DATE: 20081123
